FAERS Safety Report 7133156-0 (Version None)
Quarter: 2010Q4

REPORT INFORMATION
  Report Type: 
  Country: None (occurrence: None)
  Receive Date: 20101202
  Receipt Date: 20101125
  Transmission Date: 20110411
  Serious: Yes (Other)
  Sender: FDA-Public Use
  Company Number: JP-PFIZER INC-2010157991

PATIENT
  Age: 23 Day
  Sex: Male
  Weight: 3 kg

DRUGS (2)
  1. REVATIO [Suspect]
     Indication: PULMONARY HYPERTENSION
     Dosage: 3 MG, DAILY
     Route: 048
     Dates: start: 20101117, end: 20101119
  2. DORNER [Concomitant]
     Dosage: 3 UG/DAY

REACTIONS (1)
  - CIRCULATORY COLLAPSE [None]
